FAERS Safety Report 4578298-9 (Version None)
Quarter: 2005Q1

REPORT INFORMATION
  Report Type: 
  Country: None (occurrence: None)
  Receive Date: 20050209
  Receipt Date: 20050126
  Transmission Date: 20050727
  Serious: Yes (Disabling)
  Sender: FDA-Public Use
  Company Number: 200408192

PATIENT
  Age: 56 Year
  Sex: Female

DRUGS (24)
  1. BOTOX PURIFIED NEUROTOXIN COMPLEX [Suspect]
     Indication: FACIAL SPASM
     Dates: start: 19950101, end: 20010101
  2. BOTOX PURIFIED NEUROTOXIN COMPLEX [Suspect]
     Indication: FACIAL SPASM
     Dosage: 35 UNITS ONCE IM
     Route: 030
     Dates: start: 20020228, end: 20020228
  3. BOTOX PURIFIED NEUROTOXIN COMPLEX [Suspect]
     Indication: FACIAL SPASM
     Dosage: 37.5 UNITS ONCE IM
     Route: 030
     Dates: start: 20020813, end: 20020813
  4. CELEBREX [Concomitant]
  5. PREVACID [Concomitant]
  6. ACIPHEX [Concomitant]
  7. VALTREX [Concomitant]
  8. PREDNISONE [Concomitant]
  9. PRILOSEC [Concomitant]
  10. ACYCLOVIR [Concomitant]
  11. ALPRAZOLAM [Concomitant]
  12. HYOSCYAMINE [Concomitant]
  13. NORTRIPTYLINE HCL [Concomitant]
  14. MONODOX [Concomitant]
  15. ESTRATEST H.S. [Concomitant]
  16. CEPHALEXIN [Concomitant]
  17. ZYRTEC [Concomitant]
  18. CLOBETASOL [Concomitant]
  19. NEURONTIN [Concomitant]
  20. MAXALT [Concomitant]
  21. PREMARIN [Concomitant]
  22. ZANTAC [Concomitant]
  23. ASPIRIN [Concomitant]
  24. CARAFATE [Concomitant]

REACTIONS (24)
  - ATELECTASIS [None]
  - CEREBRAL ISCHAEMIA [None]
  - DENTAL TREATMENT [None]
  - DYSARTHRIA [None]
  - FACIAL PALSY [None]
  - FATIGUE [None]
  - GASTROOESOPHAGEAL REFLUX DISEASE [None]
  - HYPERPLASIA [None]
  - INFECTION [None]
  - INJECTION SITE NERVE DAMAGE [None]
  - LUNG DISORDER [None]
  - MUSCLE SPASMS [None]
  - MUSCULOSKELETAL DISORDER [None]
  - NAUSEA [None]
  - NEUROPATHY PERIPHERAL [None]
  - OESOPHAGEAL SPASM [None]
  - PAIN IN EXTREMITY [None]
  - PEPTIC ULCER [None]
  - PHOTOPHOBIA [None]
  - POST PROCEDURAL COMPLICATION [None]
  - SINUS DISORDER [None]
  - STATUS MIGRAINOSUS [None]
  - SURGICAL PROCEDURE REPEATED [None]
  - THERAPY NON-RESPONDER [None]
